FAERS Safety Report 17907835 (Version 1)
Quarter: 2020Q2

REPORT INFORMATION
  Report Type: Spontaneous
  Country: US (occurrence: US)
  Receive Date: 20200617
  Receipt Date: 20200617
  Transmission Date: 20200714
  Serious: No
  Sender: FDA-Public Use
  Company Number: US-JNJFOC-20200616604

PATIENT
  Age: 69 Year
  Sex: Male
  Weight: 88.53 kg

DRUGS (1)
  1. MENS ROGAINE EXTRA STRENGTH [Suspect]
     Active Substance: MINOXIDIL
     Indication: ALOPECIA
     Dosage: FOLLOW THE MEASUREMENT IN THE DROPPER?PRODUCT LAST USED ON 09-JUN-2020
     Route: 061
     Dates: start: 202005

REACTIONS (1)
  - Expired product administered [Unknown]

NARRATIVE: CASE EVENT DATE: 202005
